FAERS Safety Report 5649435-X (Version None)
Quarter: 2008Q1

REPORT INFORMATION
  Report Type: 
  Country: None (occurrence: None)
  Receive Date: 20080304
  Receipt Date: 20080220
  Transmission Date: 20080703
  Serious: Yes (Death, Life-Threatening, Other)
  Sender: FDA-Public Use
  Company Number: US-BAYER-200711177BWH

PATIENT
  Age: 45 Year
  Sex: Male
  Weight: 87 kg

DRUGS (22)
  1. SORAFENIB [Suspect]
     Indication: NON-SMALL CELL LUNG CANCER
     Dosage: TOTAL DAILY DOSE: 800 MG  UNIT DOSE: 200 MG
     Route: 048
     Dates: start: 20070209, end: 20070226
  2. SORAFENIB [Suspect]
     Dosage: TOTAL DAILY DOSE: 800 MG  UNIT DOSE: 200 MG
     Route: 048
  3. SORAFENIB [Suspect]
     Dosage: TOTAL DAILY DOSE: 800 MG  UNIT DOSE: 200 MG
     Route: 048
     Dates: start: 20070301, end: 20070318
  4. CARBOPLATIN [Suspect]
     Indication: NON-SMALL CELL LUNG CANCER
     Route: 042
     Dates: start: 20070228, end: 20070228
  5. CARBOPLATIN [Suspect]
     Route: 042
     Dates: start: 20070321, end: 20070321
  6. CARBOPLATIN [Suspect]
     Route: 042
     Dates: start: 20070208, end: 20070208
  7. PACLITAXEL [Suspect]
     Indication: NON-SMALL CELL LUNG CANCER
     Route: 042
     Dates: start: 20070208, end: 20070208
  8. PACLITAXEL [Suspect]
     Route: 042
     Dates: start: 20070228, end: 20070228
  9. PACLITAXEL [Suspect]
     Route: 042
     Dates: start: 20070321, end: 20070321
  10. ALEVE [Concomitant]
     Indication: BACK PAIN
     Route: 048
     Dates: start: 20061101, end: 20070215
  11. VICODIN [Concomitant]
     Indication: BACK PAIN
     Route: 048
     Dates: start: 20061101, end: 20070215
  12. ASPIRIN [Concomitant]
     Indication: CARDIOVASCULAR EVENT PROPHYLAXIS
     Route: 048
     Dates: start: 20040101, end: 20070131
  13. MUSHROOM SUPPLEMENT [Concomitant]
     Indication: VITAMIN SUPPLEMENTATION
     Route: 048
     Dates: start: 20060101
  14. SENOKOT [Concomitant]
     Indication: CONSTIPATION
     Route: 048
     Dates: start: 20070214
  15. CLEOCIN HYDROCHLORIDE [Concomitant]
     Indication: SPUTUM DISCOLOURED
     Route: 048
     Dates: start: 20070322, end: 20070404
  16. AMBIEN [Concomitant]
     Indication: INSOMNIA
     Route: 048
     Dates: start: 20070322
  17. ROBITUSSIN [Concomitant]
     Indication: COUGH
     Route: 048
     Dates: start: 20070312
  18. MUCINEX [Concomitant]
     Indication: COUGH
     Route: 048
     Dates: start: 20070321
  19. BENADRYL [Concomitant]
     Indication: RASH
     Route: 042
     Dates: start: 20070228, end: 20070228
  20. BENADRYL [Concomitant]
     Route: 048
     Dates: start: 20070228, end: 20070301
  21. DECADRON [Concomitant]
     Indication: DRUG HYPERSENSITIVITY
     Route: 042
     Dates: start: 20070228, end: 20070228
  22. NSAID [Concomitant]
     Indication: BACK PAIN
     Dates: start: 20070201

REACTIONS (1)
  - PULMONARY HAEMORRHAGE [None]
